FAERS Safety Report 13225694 (Version 1)
Quarter: 2017Q1

REPORT INFORMATION
  Report Type: Spontaneous
  Country: PE (occurrence: PE)
  Receive Date: 20170213
  Receipt Date: 20170213
  Transmission Date: 20170428
  Serious: Yes (Other)
  Sender: FDA-Public Use
  Company Number: PE-GLAXOSMITHKLINE-PE2017GSK018583

PATIENT
  Age: 8 Year
  Sex: Male

DRUGS (1)
  1. SERETIDE [Suspect]
     Active Substance: FLUTICASONE PROPIONATE\SALMETEROL XINAFOATE
     Indication: ASTHMA
     Dosage: 125 UNK, QID
     Route: 055
     Dates: start: 20160831

REACTIONS (2)
  - Conjunctivitis [Not Recovered/Not Resolved]
  - Asthmatic crisis [Recovering/Resolving]

NARRATIVE: CASE EVENT DATE: 20170103
